FAERS Safety Report 4897628-1 (Version None)
Quarter: 2006Q1

REPORT INFORMATION
  Report Type: 
  Country: None (occurrence: None)
  Receive Date: 20060201
  Receipt Date: 20060120
  Transmission Date: 20060701
  Serious: Yes (Hospitalization)
  Sender: FDA-Public Use
  Company Number: FR-JNJFOC-20060105622

PATIENT
  Age: 74 Year
  Sex: Male

DRUGS (7)
  1. IXPRIM [Suspect]
     Indication: NECK PAIN
     Route: 048
     Dates: start: 20051117, end: 20051118
  2. FLECAINIDE ACETATE [Concomitant]
     Indication: CARDIOMYOPATHY
     Route: 048
  3. PREVISCAN [Concomitant]
     Indication: CARDIOMYOPATHY
     Route: 048
  4. DOLIPRANE [Concomitant]
     Indication: NECK PAIN
     Route: 048
  5. KERLONE [Concomitant]
     Indication: CARDIOMYOPATHY
     Route: 048
  6. ANTARENE [Concomitant]
     Indication: NECK PAIN
     Route: 048
  7. LIPANTHYL [Concomitant]
     Route: 048

REACTIONS (4)
  - HYPERHIDROSIS [None]
  - MALAISE [None]
  - NAUSEA [None]
  - PALLOR [None]
